FAERS Safety Report 12812576 (Version 1)
Quarter: 2016Q4

REPORT INFORMATION
  Report Type: Spontaneous
  Country: BR (occurrence: BR)
  Receive Date: 20161005
  Receipt Date: 20161005
  Transmission Date: 20170207
  Serious: Yes (Other)
  Sender: FDA-Public Use
  Company Number: BR-ABBVIE-16P-020-1744040-00

PATIENT
  Sex: Male
  Weight: 60 kg

DRUGS (3)
  1. GARDENAL [Concomitant]
     Active Substance: PHENOBARBITAL
     Indication: SEIZURE
     Dosage: 1 TABLET IN MORNING/HALF TABLET AT NIGHT, BOTH WITH DEPAKENE
     Route: 048
  2. DEPAKENE [Suspect]
     Active Substance: VALPROIC ACID
     Indication: SEIZURE
     Dosage: DAILY DOSE: 1000 MG (500 MG IN THE MORNING AND 500 MG AT NIGHT)
     Route: 048
     Dates: start: 2015
  3. URBANIL [Concomitant]
     Active Substance: CLOBAZAM
     Indication: ANXIETY
     Dosage: 10 MILLIGRAM, 9 PM
     Route: 048
     Dates: start: 201608

REACTIONS (10)
  - Tremor [Unknown]
  - Drug ineffective [Not Recovered/Not Resolved]
  - Arachnoid cyst [Unknown]
  - Brain injury [Unknown]
  - Loss of consciousness [Unknown]
  - Eye movement disorder [Not Recovered/Not Resolved]
  - Somnolence [Not Recovered/Not Resolved]
  - Coordination abnormal [Not Recovered/Not Resolved]
  - Memory impairment [Not Recovered/Not Resolved]
  - Disturbance in attention [Unknown]

NARRATIVE: CASE EVENT DATE: 2015
